FAERS Safety Report 8941058 (Version 1)
Quarter: 2012Q4

REPORT INFORMATION
  Report Type: 
  Country: ZA (occurrence: ZA)
  Receive Date: 20121203
  Receipt Date: 20121203
  Transmission Date: 20130627
  Serious: Yes (Other)
  Sender: FDA-Public Use
  Company Number: ZA-ROCHE-1162537

PATIENT
  Age: 84 Year
  Sex: Female

DRUGS (1)
  1. RANIBIZUMAB [Suspect]
     Indication: AGE-RELATED MACULAR DEGENERATION
     Route: 050
     Dates: start: 20120107

REACTIONS (3)
  - Retinal haemorrhage [Unknown]
  - Inappropriate schedule of drug administration [Unknown]
  - Retinal oedema [Unknown]
